FAERS Safety Report 25324033 (Version 3)
Quarter: 2025Q3

REPORT INFORMATION
  Report Type: Report from Study
  Country: JP (occurrence: JP)
  Receive Date: 20250516
  Receipt Date: 20250707
  Transmission Date: 20251020
  Serious: Yes (Hospitalization)
  Sender: PFIZER
  Company Number: JP-PFIZER INC-PV202500058493

PATIENT
  Age: 23 Year
  Sex: Female
  Weight: 51.9 kg

DRUGS (4)
  1. SIROLIMUS [Suspect]
     Active Substance: SIROLIMUS
     Indication: Kaposiform haemangioendothelioma
     Dosage: 2 MG, DAILY
     Route: 048
     Dates: start: 20240416, end: 20240513
  2. SIROLIMUS [Suspect]
     Active Substance: SIROLIMUS
     Dosage: 3 MG, DAILY
     Route: 048
     Dates: start: 20240514, end: 20240805
  3. SIROLIMUS [Suspect]
     Active Substance: SIROLIMUS
     Dosage: 1 MG, DAILY
     Route: 048
     Dates: start: 20240904
  4. KEPPRA [Concomitant]
     Active Substance: LEVETIRACETAM
     Indication: Prophylaxis
     Route: 048
     Dates: start: 20240814

REACTIONS (2)
  - Status epilepticus [Recovering/Resolving]
  - Headache [Recovered/Resolved]

NARRATIVE: CASE EVENT DATE: 20240721
